FAERS Safety Report 18842751 (Version 3)
Quarter: 2021Q1

REPORT INFORMATION
  Report Type: Spontaneous
  Country: RO (occurrence: RO)
  Receive Date: 20210203
  Receipt Date: 20210217
  Transmission Date: 20210419
  Serious: Yes (Other)
  Sender: FDA-Public Use
  Company Number: RO-SA-2021SA030581

PATIENT
  Age: 73 Year
  Sex: Male

DRUGS (11)
  1. ACETYLSALICYLIC ACID [Suspect]
     Active Substance: ASPIRIN
     Dosage: 1 DF, QD  AT LUNCH
  2. AMLODIPINE BESILATE [Suspect]
     Active Substance: AMLODIPINE BESYLATE
     Dosage: IN THE MORNING
     Route: 065
  3. OMEPRAZOLE. [Suspect]
     Active Substance: OMEPRAZOLE
     Dosage: IN THE MORNING
     Route: 065
  4. TRIMETAZIDINE HYDROCHLORIDE [Suspect]
     Active Substance: TRIMETAZIDINE DIHYDROCHLORIDE
     Dosage: IN THE MORNING AND EVENING
     Route: 065
  5. ATORVASTATIN CALCIUM. [Suspect]
     Active Substance: ATORVASTATIN CALCIUM
     Dosage: IN THE EVENING
     Route: 065
  6. LIV 52 DS [DIETARY SUPPLEMENT\HERBALS] [Suspect]
     Active Substance: DIETARY SUPPLEMENT\HERBALS
     Dosage: IN THE MORNING AND EVENING
     Route: 065
  7. SERMION [Suspect]
     Active Substance: NICERGOLINE
     Dosage: IN THE EVENING
     Route: 065
  8. MILGAMMA [BENFOTIAMINE] [Suspect]
     Active Substance: BENFOTIAMINE
     Dosage: UNK
  9. DEPAKINE CHRONO [Suspect]
     Active Substance: VALPROATE SODIUM
     Indication: EPILEPSY
     Dosage: 250 MG, QD
     Route: 065
     Dates: start: 20210118, end: 20210125
  10. METOPROLOL SUCCINATE. [Suspect]
     Active Substance: METOPROLOL SUCCINATE
     Dosage: 1 DF, QD AT LUNCH
     Route: 065
  11. INDAPAMIDE. [Suspect]
     Active Substance: INDAPAMIDE
     Route: 065

REACTIONS (11)
  - Insomnia [Recovered/Resolved]
  - Somnolence [Recovered/Resolved]
  - Agitation [Recovered/Resolved]
  - Seizure [Not Recovered/Not Resolved]
  - Feeding disorder [Recovered/Resolved]
  - Erythema [Unknown]
  - Seizure [Not Recovered/Not Resolved]
  - Epilepsy [Not Recovered/Not Resolved]
  - Confusional state [Recovered/Resolved]
  - Abdominal pain [Recovered/Resolved]
  - Pruritus [Recovered/Resolved]

NARRATIVE: CASE EVENT DATE: 20210123
